FAERS Safety Report 22068498 (Version 1)
Quarter: 2023Q1

REPORT INFORMATION
  Report Type: Spontaneous
  Country: US (occurrence: US)
  Receive Date: 20230307
  Receipt Date: 20230307
  Transmission Date: 20230418
  Serious: Yes (Hospitalization)
  Sender: FDA-Public Use
  Company Number: US-MYLANLABS-2023M1022906

PATIENT
  Age: 3 Year
  Sex: Male

DRUGS (3)
  1. TRIAMCINOLONE [Suspect]
     Active Substance: TRIAMCINOLONE
     Indication: Drug therapy
     Dosage: 40 MILLIGRAM
     Route: 042
  2. PANTOPRAZOLE [Concomitant]
     Active Substance: PANTOPRAZOLE
     Indication: Product used for unknown indication
     Dosage: UNK UNK, BID
     Route: 065
  3. PIPERACILLIN SODIUM\TAZOBACTAM SODIUM [Concomitant]
     Active Substance: PIPERACILLIN SODIUM\TAZOBACTAM SODIUM
     Indication: Antibiotic prophylaxis
     Dosage: UNK
     Route: 065

REACTIONS (5)
  - Mediastinal abscess [Recovering/Resolving]
  - Staphylococcal infection [Recovering/Resolving]
  - Adenovirus infection [Recovering/Resolving]
  - Tracheomalacia [Unknown]
  - Obstructive airways disorder [Unknown]
